FAERS Safety Report 5147000-4 (Version None)
Quarter: 2006Q4

REPORT INFORMATION
  Report Type: 
  Country: None (occurrence: None)
  Receive Date: 20061109
  Receipt Date: 20061006
  Transmission Date: 20070319
  Serious: Yes (Life-Threatening, Hospitalization, Other)
  Sender: FDA-Public Use
  Company Number: US-JNJFOC-20060301592

PATIENT
  Sex: Female
  Weight: 77.11 kg

DRUGS (1)
  1. ORTHO EVRA [Suspect]
     Indication: CONTRACEPTION
     Route: 062

REACTIONS (21)
  - ATELECTASIS [None]
  - CARDIOMEGALY [None]
  - DEEP VEIN THROMBOSIS [None]
  - GASTROENTERITIS [None]
  - HAEMOGLOBIN DECREASED [None]
  - HAEMOPTYSIS [None]
  - HILAR LYMPHADENOPATHY [None]
  - HYPERCOAGULATION [None]
  - HYPOTENSION [None]
  - INTERNATIONAL NORMALISED RATIO INCREASED [None]
  - MITRAL VALVE INCOMPETENCE [None]
  - PELVIC HAEMATOMA [None]
  - PERICARDIAL EFFUSION [None]
  - PLEURISY [None]
  - PNEUMONIA [None]
  - PULMONARY EMBOLISM [None]
  - PULMONARY HYPERTENSION [None]
  - RETROPERITONEAL HAEMATOMA [None]
  - SYNCOPE [None]
  - TACHYCARDIA [None]
  - TRICUSPID VALVE INCOMPETENCE [None]
